FAERS Safety Report 12370455 (Version 3)
Quarter: 2016Q2

REPORT INFORMATION
  Report Type: Spontaneous
  Country: US (occurrence: US)
  Receive Date: 20160516
  Receipt Date: 20160630
  Transmission Date: 20160815
  Serious: No
  Sender: FDA-Public Use
  Company Number: US-009507513-1605USA002190

PATIENT
  Age: 28 Year
  Sex: Female
  Weight: 81.63 kg

DRUGS (3)
  1. NEXPLANON [Suspect]
     Active Substance: ETONOGESTREL
     Indication: CONTRACEPTION
     Dosage: 1 ROD/EVERY3 YEARS
     Route: 059
     Dates: start: 20160408, end: 20160620
  2. ETONOGESTREL IMPLANT- UNKNOWN [Concomitant]
     Active Substance: ETONOGESTREL
     Dosage: UNK
     Route: 059
     Dates: end: 20130425
  3. ETONOGESTREL IMPLANT- UNKNOWN [Concomitant]
     Active Substance: ETONOGESTREL
     Dosage: UNK
     Route: 059
     Dates: start: 20130425, end: 20160408

REACTIONS (2)
  - Implant site pain [Recovered/Resolved]
  - Skin discolouration [Recovered/Resolved]

NARRATIVE: CASE EVENT DATE: 20160408
